FAERS Safety Report 7042021-9 (Version None)
Quarter: 2010Q4

REPORT INFORMATION
  Report Type: 
  Country: None (occurrence: None)
  Receive Date: 20101013
  Receipt Date: 20100419
  Transmission Date: 20110411
  Serious: No
  Sender: FDA-Public Use
  Company Number: US-ASTRAZENECA-2010SE17449

PATIENT
  Age: 68 Year
  Sex: Female
  Weight: 122.5 kg

DRUGS (2)
  1. SYMBICORT [Suspect]
     Indication: WHEEZING
     Dosage: 80/4.5 MCG ONE PUFF
     Route: 055
     Dates: start: 20100101
  2. NASONEX [Concomitant]
     Dates: start: 20100101

REACTIONS (2)
  - CROSS SENSITIVITY REACTION [None]
  - HYPERSENSITIVITY [None]
